FAERS Safety Report 5841149-6 (Version None)
Quarter: 2008Q3

REPORT INFORMATION
  Report Type: 
  Country: None (occurrence: None)
  Receive Date: 20080807
  Receipt Date: 20080807
  Transmission Date: 20090109
  Serious: No
  Sender: FDA-Public Use
  Company Number: None

PATIENT
  Age: 55 Year
  Sex: Female
  Weight: 70 kg

DRUGS (1)
  1. FOSPHENYTOIN [Suspect]
     Indication: CONVULSION
     Dosage: 1000 PE  ONCE  IV
     Route: 042

REACTIONS (5)
  - DIZZINESS [None]
  - FEELING DRUNK [None]
  - HEADACHE [None]
  - ILL-DEFINED DISORDER [None]
  - PARAESTHESIA [None]
